FAERS Safety Report 6103640-7 (Version None)
Quarter: 2009Q1

REPORT INFORMATION
  Report Type: 
  Country: None (occurrence: None)
  Receive Date: 20090305
  Receipt Date: 20090224
  Transmission Date: 20090719
  Serious: Yes (Other)
  Sender: FDA-Public Use
  Company Number: US-JNJFOC-20081205933

PATIENT
  Sex: Female
  Weight: 54.43 kg

DRUGS (11)
  1. REMICADE [Suspect]
     Route: 042
  2. REMICADE [Suspect]
     Route: 042
  3. REMICADE [Suspect]
     Route: 042
  4. REMICADE [Suspect]
     Indication: CROHN'S DISEASE
     Route: 042
  5. CIPROFLOXACIN HCL [Concomitant]
     Indication: CROHN'S DISEASE
  6. EVISTA [Concomitant]
     Indication: OSTEOPOROSIS
  7. VITAMIN D [Concomitant]
     Indication: VITAMIN D DEFICIENCY
  8. CYMBALTA [Concomitant]
     Indication: DEPRESSION
  9. PREDNISONE [Concomitant]
     Indication: CROHN'S DISEASE
  10. XANAX [Concomitant]
     Indication: ANXIETY
  11. LOMOTIL [Concomitant]
     Indication: CROHN'S DISEASE
     Dosage: DOSE= 10 TABS DAILY

REACTIONS (2)
  - DERMATITIS [None]
  - STAPHYLOCOCCAL INFECTION [None]
